FAERS Safety Report 17655662 (Version 1)
Quarter: 2020Q2

REPORT INFORMATION
  Report Type: Spontaneous
  Country: US (occurrence: US)
  Receive Date: 20200409
  Receipt Date: 20200409
  Transmission Date: 20200713
  Serious: No
  Sender: FDA-Public Use
  Company Number: None

PATIENT
  Age: 65 Year
  Sex: Female

DRUGS (1)
  1. EPCLUSA [Suspect]
     Active Substance: SOFOSBUVIR\VELPATASVIR
     Dosage: ?          OTHER DOSE:400-100;?
     Route: 048
     Dates: start: 20200301

REACTIONS (3)
  - Pruritus [None]
  - Condition aggravated [None]
  - Urticaria [None]

NARRATIVE: CASE EVENT DATE: 20200409
